FAERS Safety Report 6362116-2 (Version None)
Quarter: 2009Q3

REPORT INFORMATION
  Report Type: 
  Country: None (occurrence: None)
  Receive Date: 20090918
  Receipt Date: 20090909
  Transmission Date: 20100115
  Serious: Yes (Hospitalization, Other)
  Sender: FDA-Public Use
  Company Number: US-ELI_LILLY_AND_COMPANY-US200907000982

PATIENT
  Sex: Female
  Weight: 137.42 kg

DRUGS (15)
  1. BYETTA [Suspect]
     Indication: TYPE 2 DIABETES MELLITUS
     Dosage: 5 UG, 2/D
     Dates: start: 20061001, end: 20061101
  2. BYETTA [Suspect]
     Dosage: 10 UG, 2/D
     Dates: start: 20061101, end: 20080701
  3. BYETTA [Suspect]
     Dosage: 5 UG, 2/D
     Dates: start: 20080901, end: 20081001
  4. BYETTA [Suspect]
     Dosage: 10 UG, 2/D
     Dates: start: 20081001, end: 20090605
  5. METFORMIN HCL [Concomitant]
     Dosage: 1000 MG, 2/D
     Route: 048
  6. AMARYL [Concomitant]
     Dosage: 4 MG, EACH MORNING
     Route: 048
  7. TEGRETOL [Concomitant]
     Indication: HEADACHE
     Dosage: 200 MG, 2/D
     Route: 048
  8. PREMARIN [Concomitant]
     Dosage: 2.5 MG, DAILY (1/D)
     Route: 048
  9. DIFLUCAN [Concomitant]
     Dosage: 150 MG, EACH MORNING
     Route: 048
  10. BUSPAR [Concomitant]
     Dosage: 10 MG, EACH EVENING
     Route: 048
  11. LEXAPRO [Concomitant]
     Dosage: 30 MG, EACH MORNING
     Route: 048
  12. VICODIN [Concomitant]
     Dosage: UNK, AS NEEDED
     Route: 048
  13. LASIX [Concomitant]
     Dosage: 40 MG, EACH MORNING
     Route: 048
  14. DIOVAN [Concomitant]
     Dosage: 160 MG, DAILY (1/D)
     Route: 048
  15. SIMVASTATIN [Concomitant]

REACTIONS (5)
  - GASTRITIS [None]
  - PANCREATITIS [None]
  - PYREXIA [None]
  - THYROID CANCER [None]
  - WEIGHT DECREASED [None]
